FAERS Safety Report 7875413-6 (Version None)
Quarter: 2011Q4

REPORT INFORMATION
  Report Type: 
  Country: None (occurrence: None)
  Receive Date: 20111031
  Receipt Date: 20111020
  Transmission Date: 20120403
  Serious: Yes (Hospitalization)
  Sender: FDA-Public Use
  Company Number: PHEH2011US07596

PATIENT
  Sex: Male

DRUGS (1)
  1. EXJADE [Suspect]
     Dosage: 500 MG, BID
     Route: 048

REACTIONS (3)
  - DEVICE RELATED INFECTION [None]
  - PNEUMONIA [None]
  - DIARRHOEA [None]
